FAERS Safety Report 16712065 (Version 1)
Quarter: 2019Q3

REPORT INFORMATION
  Report Type: Spontaneous
  Country: FR (occurrence: FR)
  Receive Date: 20190816
  Receipt Date: 20190816
  Transmission Date: 20191004
  Serious: Yes (Life-Threatening)
  Sender: FDA-Public Use
  Company Number: FR-TEVA-2019-FR-1092627

PATIENT
  Age: 32 Year
  Sex: Female
  Weight: 40 kg

DRUGS (10)
  1. HALDOL DECANOAS, SOLUTION INJECTABLE [Suspect]
     Active Substance: HALOPERIDOL DECANOATE
     Indication: ANOREXIA NERVOSA
     Route: 030
  2. NOCTAMIDE 1 MG, COMPRIM? S?CABLE [Concomitant]
     Active Substance: LORMETAZEPAM
     Route: 048
  3. PANTOPRAZOLE [Concomitant]
     Active Substance: PANTOPRAZOLE
     Route: 048
  4. BEVITINE 250 MG, COMPRIM? ENROB? [Concomitant]
     Active Substance: THIAMINE HYDROCHLORIDE
     Route: 048
  5. TEMESTA 1 MG, COMPRIM? S?CABLE [Concomitant]
     Active Substance: LORAZEPAM
     Route: 048
  6. PHOSPHONEUROS, SOLUTION BUVABLE EN GOUTTES [Concomitant]
     Active Substance: CALCIUM PHOSPHATE, DIBASIC, ANHYDROUS\MAGNESIUM GLYCEROPHOSPHATE\PHOSPHORIC ACID\SODIUM PHOSPHATE, DIBASIC
     Route: 048
  7. QUETIAPINE. [Suspect]
     Active Substance: QUETIAPINE
     Indication: ANOREXIA NERVOSA
     Route: 048
     Dates: start: 2014
  8. CHOLECALCIFEROL [Concomitant]
     Active Substance: CHOLECALCIFEROL
     Route: 048
  9. ACIDE FOLIQUE [Concomitant]
     Active Substance: FOLIC ACID
     Route: 048
  10. THERALENE 4 POUR CENT, SOLUTION BUVABLE EN GOUTTES [Concomitant]
     Active Substance: TRIMEPRAZINE
     Dosage: IF NECESSARY
     Route: 048

REACTIONS (3)
  - Neutropenia [Not Recovered/Not Resolved]
  - Leukopenia [Not Recovered/Not Resolved]
  - Anaemia [Not Recovered/Not Resolved]

NARRATIVE: CASE EVENT DATE: 201902
